FAERS Safety Report 20340436 (Version 1)
Quarter: 2022Q1

REPORT INFORMATION
  Report Type: Report from Study
  Country: US (occurrence: None)
  Receive Date: 20220117
  Receipt Date: 20220117
  Transmission Date: 20220423
  Serious: Yes (Death, Other)
  Sender: FDA-Public Use
  Company Number: US-ROCHE-2785693

PATIENT
  Age: 62 Year
  Sex: Female
  Weight: 65.2 kg

DRUGS (3)
  1. ATEZOLIZUMAB [Suspect]
     Active Substance: ATEZOLIZUMAB
     Indication: Ovarian cancer
     Dosage: LAST DOSE: 06/AUG/2019
     Route: 041
     Dates: start: 20190212
  2. PREDNISONE [Concomitant]
     Active Substance: PREDNISONE
  3. HYDROCORTISONE [Concomitant]
     Active Substance: HYDROCORTISONE

REACTIONS (2)
  - Adrenal insufficiency [Fatal]
  - Proteinuria [Unknown]

NARRATIVE: CASE EVENT DATE: 20190711
